FAERS Safety Report 9894623 (Version 2)
Quarter: 2014Q1

REPORT INFORMATION
  Report Type: Spontaneous
  Country: US (occurrence: US)
  Receive Date: 20140213
  Receipt Date: 20140213
  Transmission Date: 20141002
  Serious: No
  Sender: FDA-Public Use
  Company Number: US-GILEAD-2012-0054873

PATIENT
  Sex: Female

DRUGS (4)
  1. CAYSTON [Suspect]
     Indication: CYSTIC FIBROSIS
     Dosage: UNK
     Route: 055
  2. TOBI                               /00304201/ [Concomitant]
     Dosage: UNK
  3. PULMOZYME [Concomitant]
     Dosage: UNK
  4. HYPERTONIC SALINE SOLUTION [Concomitant]
     Dosage: UNK

REACTIONS (2)
  - Dyspnoea [Unknown]
  - Wheezing [Recovering/Resolving]
